FAERS Safety Report 8226448-5 (Version None)
Quarter: 2012Q1

REPORT INFORMATION
  Report Type: 
  Country: None (occurrence: None)
  Receive Date: 20120322
  Receipt Date: 20120309
  Transmission Date: 20120608
  Serious: Yes (Hospitalization)
  Sender: FDA-Public Use
  Company Number: US-BRISTOL-MYERS SQUIBB COMPANY-16447203

PATIENT
  Age: 78 Year
  Sex: Female

DRUGS (2)
  1. METFORMIN HCL [Suspect]
     Dates: start: 20120305, end: 20120308
  2. BMS754807 [Suspect]
     Indication: BREAST CANCER
     Dosage: INTER ON 05MAR12
     Route: 048
     Dates: start: 20120221, end: 20120305

REACTIONS (2)
  - NAUSEA [None]
  - DEHYDRATION [None]
